FAERS Safety Report 11506673 (Version 1)
Quarter: 2015Q3

REPORT INFORMATION
  Report Type: Spontaneous
  Country: US (occurrence: US)
  Receive Date: 20150915
  Receipt Date: 20150915
  Transmission Date: 20151125
  Serious: No
  Sender: FDA-Public Use
  Company Number: US-PFIZER INC-2015307416

PATIENT
  Age: 50 Year
  Sex: Female
  Weight: 47.17 kg

DRUGS (2)
  1. PRISTIQ EXTENDED RELEASE [Suspect]
     Active Substance: DESVENLAFAXINE SUCCINATE
     Indication: MENOPAUSAL SYMPTOMS
     Dosage: 50 MG, 1X/DAY
     Route: 048
     Dates: end: 2015
  2. PRISTIQ EXTENDED RELEASE [Suspect]
     Active Substance: DESVENLAFAXINE SUCCINATE
     Indication: DEPRESSION

REACTIONS (7)
  - Nausea [Unknown]
  - Hyperhidrosis [Unknown]
  - Anxiety [Unknown]
  - Activities of daily living impaired [Unknown]
  - Thinking abnormal [Unknown]
  - Drug prescribing error [Unknown]
  - Product use issue [Unknown]

NARRATIVE: CASE EVENT DATE: 2015
